FAERS Safety Report 7211141-8 (Version None)
Quarter: 2011Q1

REPORT INFORMATION
  Report Type: 
  Country: None (occurrence: None)
  Receive Date: 20110105
  Receipt Date: 20101222
  Transmission Date: 20110831
  Serious: Yes (Other)
  Sender: FDA-Public Use
  Company Number: PHHY2010TR87300

PATIENT
  Age: 30 Year
  Sex: Male

DRUGS (4)
  1. CORTICOSTEROID NOS [Concomitant]
  2. TRIAMCINOLONE ACETONIDE [Suspect]
     Indication: EYE INFLAMMATION
  3. AZATHIOPRINE [Concomitant]
     Dosage: 150 MG DAILY
  4. PREDNISOLONE [Concomitant]
     Dosage: 10 MG/DAY

REACTIONS (5)
  - CORNEAL DEPOSITS [None]
  - CYTOMEGALOVIRUS CHORIORETINITIS [None]
  - VITRECTOMY [None]
  - NECROTISING RETINITIS [None]
  - CYTOMEGALOVIRUS TEST POSITIVE [None]
